FAERS Safety Report 25575249 (Version 1)
Quarter: 2025Q3

REPORT INFORMATION
  Report Type: Spontaneous
  Country: CN (occurrence: CN)
  Receive Date: 20250718
  Receipt Date: 20250718
  Transmission Date: 20251021
  Serious: Yes (Hospitalization)
  Sender: BEIGENE
  Company Number: CN-BEIGENE-BGN-2025-011345

PATIENT
  Age: 66 Year
  Weight: 82 kg

DRUGS (4)
  1. TISLELIZUMAB [Suspect]
     Active Substance: TISLELIZUMAB
     Indication: Oesophageal adenocarcinoma stage IV
     Dosage: 200 MILLIGRAM, D1, Q3WK
  2. CAPECITABINE [Suspect]
     Active Substance: CAPECITABINE
     Indication: Oesophageal adenocarcinoma stage IV
     Dosage: 2 GRAM, BID, D1-D14
  3. PACLITAXEL [Suspect]
     Active Substance: PACLITAXEL
     Indication: Oesophageal adenocarcinoma stage IV
     Dosage: 400 MILLIGRAM, D1, Q3WK
  4. SODIUM CHLORIDE [Concomitant]
     Active Substance: SODIUM CHLORIDE
     Indication: Vehicle solution use

REACTIONS (3)
  - Liver injury [Recovering/Resolving]
  - Myelosuppression [Recovering/Resolving]
  - Cardiotoxicity [Recovering/Resolving]
